FAERS Safety Report 5943957-X (Version None)
Quarter: 2008Q4

REPORT INFORMATION
  Report Type: 
  Country: None (occurrence: None)
  Receive Date: 20081106
  Receipt Date: 20081027
  Transmission Date: 20090506
  Serious: Yes (Hospitalization)
  Sender: FDA-Public Use
  Company Number: FR-WYE-H06649008

PATIENT
  Sex: Female

DRUGS (13)
  1. CORDARONE [Suspect]
     Route: 048
  2. ACETYLSALICYLIC ACID SRT [Suspect]
     Indication: MUSCULOSKELETAL CHEST PAIN
     Dosage: UNKNOWN
     Route: 048
     Dates: start: 20070831, end: 20070901
  3. PREVISCAN [Suspect]
     Indication: ATRIAL FIBRILLATION
     Route: 048
     Dates: start: 20050801, end: 20070901
  4. LASIX [Concomitant]
     Route: 048
  5. KALEORID [Concomitant]
     Route: 048
  6. TETRAZEPAM [Concomitant]
  7. MOTILIUM [Concomitant]
  8. KETOPROFEN [Concomitant]
  9. TROXERUTIN [Concomitant]
  10. FLECAINE [Concomitant]
  11. ACETAMINOPHEN [Concomitant]
  12. PLAVIX [Suspect]
     Route: 048
     Dates: end: 20070901
  13. PROPOFAN [Concomitant]

REACTIONS (5)
  - ANAEMIA [None]
  - ECCHYMOSIS [None]
  - FALL [None]
  - MELAENA [None]
  - RECTAL HAEMORRHAGE [None]
